FAERS Safety Report 12667438 (Version 8)
Quarter: 2019Q3

REPORT INFORMATION
  Report Type: Spontaneous
  Country: US (occurrence: US)
  Receive Date: 20160819
  Receipt Date: 20190828
  Transmission Date: 20191004
  Serious: Yes (Other)
  Sender: FDA-Public Use
  Company Number: US-PFIZER INC-2016220736

PATIENT
  Age: 72 Year
  Sex: Female
  Weight: 86 kg

DRUGS (21)
  1. LOVASTATIN. [Concomitant]
     Active Substance: LOVASTATIN
     Dosage: 60 MG, 1X/DAY [1.5 TABLETS AT NIGHT]
     Route: 048
  2. BENAZEPRIL [Concomitant]
     Active Substance: BENAZEPRIL HYDROCHLORIDE
     Dosage: 20 MG, UNK
  3. CELEXA [Concomitant]
     Active Substance: CITALOPRAM HYDROBROMIDE
     Dosage: 20 MG, UNK
  4. TEGRETOL [Concomitant]
     Active Substance: CARBAMAZEPINE
     Dosage: 100 MG, UNK
  5. AMLODIPINE [Concomitant]
     Active Substance: AMLODIPINE BESYLATE
     Dosage: 10 MG, 1X/DAY
     Route: 048
     Dates: end: 201703
  6. SYNTHROID [Concomitant]
     Active Substance: LEVOTHYROXINE SODIUM
     Dosage: 224 UG, 1X/DAY
     Route: 048
  7. LOSARTAN. [Concomitant]
     Active Substance: LOSARTAN
     Dosage: 50 MG, 1X/DAY
     Route: 048
     Dates: end: 201703
  8. NEURONTIN [Concomitant]
     Active Substance: GABAPENTIN
     Dosage: 300 MG, UNK
  9. LYRICA [Suspect]
     Active Substance: PREGABALIN
     Indication: TRIGEMINAL NEURALGIA
     Dosage: 100 MG, 1X/DAY
     Route: 048
     Dates: start: 201512
  10. TEGRETOL [Concomitant]
     Active Substance: CARBAMAZEPINE
     Indication: TRIGEMINAL NEURALGIA
     Dosage: 5 DF, DAILY (TWO TABLETS IN THE MORNING, THREE TABLETS IN THE EVENING)
     Route: 048
  11. SYNTHROID [Concomitant]
     Active Substance: LEVOTHYROXINE SODIUM
     Indication: HYPOTHYROIDISM
     Dosage: 0.3 MG, UNK
  12. LYRICA [Suspect]
     Active Substance: PREGABALIN
     Dosage: 75 MG, UNK
  13. OXYBUTYNIN. [Concomitant]
     Active Substance: OXYBUTYNIN CHLORIDE
     Indication: BLADDER DISORDER
     Dosage: 10 MG, 2X/DAY
     Route: 048
  14. LOVASTATIN. [Concomitant]
     Active Substance: LOVASTATIN
     Indication: BLOOD CHOLESTEROL INCREASED
     Dosage: 10 MG, UNK
  15. OMEPRAZOLE. [Concomitant]
     Active Substance: OMEPRAZOLE
     Indication: GASTROOESOPHAGEAL REFLUX DISEASE
     Dosage: 20 MG, 2X/DAY
  16. CARBAMAZEPINE. [Concomitant]
     Active Substance: CARBAMAZEPINE
     Indication: TRIGEMINAL NEURALGIA
     Dosage: 1000 MG, DAILY (2 PILLS IN THE MORNING AND 3 PILLS AT NIGHT)
  17. EXCEDRIN PM [Concomitant]
     Active Substance: ACETAMINOPHEN\DIPHENHYDRAMINE\DIPHENHYDRAMINE CITRATE
     Indication: SLEEP DISORDER
     Dosage: UNK
  18. LYRICA [Suspect]
     Active Substance: PREGABALIN
     Dosage: UNK
  19. NAPROXEN. [Concomitant]
     Active Substance: NAPROXEN
     Indication: KNEE DEFORMITY
     Dosage: 500 MG, 1X/DAY (IN THE MORNING)
  20. LEVOTHYROXINE. [Concomitant]
     Active Substance: LEVOTHYROXINE
     Indication: HYPOTHYROIDISM
     Dosage: 224 UG, DAILY
     Route: 048
  21. LYRICA [Suspect]
     Active Substance: PREGABALIN
     Indication: HEADACHE
     Dosage: 50 MG, 2X/DAY (1 IN THE MORNING AND 1 AT NIGHT)
     Route: 048
     Dates: end: 201812

REACTIONS (4)
  - Intentional product use issue [Unknown]
  - Weight increased [Recovered/Resolved]
  - Drug effective for unapproved indication [Unknown]
  - Tooth abscess [Unknown]

NARRATIVE: CASE EVENT DATE: 2018
